FAERS Safety Report 11126305 (Version 1)
Quarter: 2015Q2

REPORT INFORMATION
  Report Type: Report from Study
  Country: AR (occurrence: AR)
  Receive Date: 20150520
  Receipt Date: 20150520
  Transmission Date: 20150821
  Serious: Yes (Hospitalization)
  Sender: FDA-Public Use
  Company Number: PHHY2015AR056709

PATIENT
  Sex: Male

DRUGS (1)
  1. ONBREZ [Suspect]
     Active Substance: INDACATEROL
     Indication: CHRONIC OBSTRUCTIVE PULMONARY DISEASE
     Dosage: 1 OT, QD
     Route: 055

REACTIONS (8)
  - Dyspnoea exertional [Not Recovered/Not Resolved]
  - Neutropenia [Unknown]
  - Cough [Unknown]
  - Tonsillitis [Unknown]
  - Bronchial disorder [Unknown]
  - Depressed mood [Unknown]
  - Immune system disorder [Unknown]
  - Oropharyngeal pain [Unknown]
